FAERS Safety Report 11431178 (Version 1)
Quarter: 2015Q3

REPORT INFORMATION
  Report Type: Spontaneous
  Country: US (occurrence: US)
  Receive Date: 20150828
  Receipt Date: 20150828
  Transmission Date: 20151125
  Serious: No
  Sender: FDA-Public Use
  Company Number: PHEH2014US023072

PATIENT
  Sex: Female

DRUGS (3)
  1. VIVELLE DOT [Suspect]
     Active Substance: ESTRADIOL
     Indication: PRODUCT USED FOR UNKNOWN INDICATION
     Dosage: UNK UKN, UNK
     Route: 062
  2. VIVELLE DOT [Suspect]
     Active Substance: ESTRADIOL
     Dosage: 0.075 MG, UNK
     Route: 062
  3. VIVELLE DOT [Suspect]
     Active Substance: ESTRADIOL
     Dosage: 0.05 MG, UNK
     Route: 062

REACTIONS (5)
  - Wrong technique in product usage process [Unknown]
  - Drug intolerance [Unknown]
  - Incorrect dose administered [Unknown]
  - Eye pain [Unknown]
  - Headache [Unknown]
